FAERS Safety Report 25176898 (Version 1)
Quarter: 2025Q2

REPORT INFORMATION
  Report Type: Spontaneous
  Country: JP (occurrence: JP)
  Receive Date: 20250409
  Receipt Date: 20250409
  Transmission Date: 20250717
  Serious: Yes (Other)
  Sender: ROCHE
  Company Number: JP-002147023-NVSJ2025JP004058

PATIENT

DRUGS (1)
  1. XOLAIR [Suspect]
     Active Substance: OMALIZUMAB
     Indication: Rhinitis allergic
     Route: 058
     Dates: start: 2024, end: 2024

REACTIONS (1)
  - Anaphylactoid reaction [Recovered/Resolved]
